FAERS Safety Report 6082663-0 (Version None)
Quarter: 2009Q1

REPORT INFORMATION
  Report Type: 
  Country: None (occurrence: None)
  Receive Date: 20090218
  Receipt Date: 20090209
  Transmission Date: 20090719
  Serious: Yes (Hospitalization)
  Sender: FDA-Public Use
  Company Number: PHHY2009BR04976

PATIENT
  Age: 82 Year
  Sex: Female
  Weight: 40 kg

DRUGS (3)
  1. HYDERGINE [Suspect]
     Indication: CONFUSIONAL STATE
     Dosage: 1MG/ML TWICE DAILY
     Route: 048
  2. HYDERGINE [Suspect]
     Dosage: 4.5 MG, 45 DROPS THREE TIMES A DAY
     Route: 048
  3. NOOTROPIL [Concomitant]
     Indication: CONFUSIONAL STATE
     Dosage: 800 MG (1 DF DAILY)

REACTIONS (7)
  - APHASIA [None]
  - BRAIN COMPRESSION [None]
  - CEREBROVASCULAR ACCIDENT [None]
  - EYE MOVEMENT DISORDER [None]
  - HAEMORRHAGE INTRACRANIAL [None]
  - HYPOKINESIA [None]
  - THERAPY CESSATION [None]
